FAERS Safety Report 8566447-7 (Version None)
Quarter: 2012Q3

REPORT INFORMATION
  Report Type: 
  Country: None (occurrence: None)
  Receive Date: 20120730
  Receipt Date: 20120730
  Transmission Date: 20120928
  Serious: No
  Sender: FDA-Public Use
  Company Number: None

PATIENT
  Sex: Female
  Weight: 70.3 kg

DRUGS (1)
  1. ZOMETA [Suspect]

REACTIONS (2)
  - OSTEONECROSIS OF JAW [None]
  - EXOSTOSIS [None]
